FAERS Safety Report 8168239-X (Version None)
Quarter: 2012Q1

REPORT INFORMATION
  Report Type: 
  Country: None (occurrence: None)
  Receive Date: 20120222
  Receipt Date: 20120209
  Transmission Date: 20120608
  Serious: Yes (Hospitalization)
  Sender: FDA-Public Use
  Company Number: DSJ-2012-02530

PATIENT
  Age: 60 Year
  Sex: Male

DRUGS (4)
  1. ATENOLOL [Concomitant]
  2. CHLORTHALIDONE(CHLORTALIDONE)(CHLORTALIDONE) [Concomitant]
  3. BENICAR ANLO (OLMESARTAN MEDOXOMIL, AMLODIPINE MEDOXOMIL, AMLODIPINE B [Suspect]
     Indication: HYPERTENSION
     Dosage: 40/5 MG (1 IN 1 D),PER ORAL  HYPERTENSION,  40/5 MG (1 IN 1 D), PER ORAL
     Route: 048
     Dates: start: 20120101
  4. BENICAR ANLO (OLMESARTAN MEDOXOMIL, AMLODIPINE MEDOXOMIL, AMLODIPINE B [Suspect]
     Indication: HYPERTENSION
     Dosage: 40/5 MG (1 IN 1 D),PER ORAL  HYPERTENSION,  40/5 MG (1 IN 1 D), PER ORAL
     Route: 048
     Dates: start: 20110101

REACTIONS (7)
  - TREATMENT NONCOMPLIANCE [None]
  - AORTIC ANEURYSM [None]
  - DRUG ADMINISTRATION ERROR [None]
  - UNEVALUABLE EVENT [None]
  - BLOOD PRESSURE INCREASED [None]
  - HYPERURICAEMIA [None]
  - CONDITION AGGRAVATED [None]
